FAERS Safety Report 19226846 (Version 1)
Quarter: 2021Q2

REPORT INFORMATION
  Report Type: Spontaneous
  Country: US (occurrence: US)
  Receive Date: 20210506
  Receipt Date: 20210506
  Transmission Date: 20210717
  Serious: Yes (Other)
  Sender: FDA-Public Use
  Company Number: US-JNJFOC-20210458079

PATIENT
  Sex: Female

DRUGS (3)
  1. TOPAMAX [Suspect]
     Active Substance: TOPIRAMATE
     Route: 048
     Dates: end: 20210409
  2. TOPAMAX [Suspect]
     Active Substance: TOPIRAMATE
     Dosage: IN THE REALITY I WAS TAKING A HALF DOSE^ , ^TWO THREE MONTHS I CUT IT IN HALF^.
     Route: 048
  3. TOPAMAX [Suspect]
     Active Substance: TOPIRAMATE
     Indication: PRODUCT USED FOR UNKNOWN INDICATION
     Route: 048

REACTIONS (7)
  - Limb operation [Unknown]
  - Wrong technique in product usage process [Unknown]
  - Brain oedema [Unknown]
  - Blood urine present [Unknown]
  - Off label use [Unknown]
  - Nephrolithiasis [Unknown]
  - Incorrect dose administered [Unknown]
